FAERS Safety Report 10657866 (Version 2)
Quarter: 2014Q4

REPORT INFORMATION
  Report Type: Spontaneous
  Country: US (occurrence: US)
  Receive Date: 20141217
  Receipt Date: 20141217
  Transmission Date: 20150529
  Serious: No
  Sender: FDA-Public Use
  Company Number: US-GLAXOSMITHKLINE-A1055181A

PATIENT

DRUGS (13)
  1. VITAMIN B COMPLEX [Concomitant]
     Active Substance: CYANOCOBALAMIN\DEXPANTHENOL\NIACINAMIDE\PYRIDOXINE HYDROCHLORIDE\RIBOFLAVIN 5^-PHOSPHATE SODIUM\THIAMINE HYDROCHLORIDE\VITAMIN B COMPLEX
  2. IODINE [Concomitant]
     Active Substance: IODINE
  3. NIACIN. [Concomitant]
     Active Substance: NIACIN
  4. LEVOTHYROXINE [Concomitant]
     Active Substance: LEVOTHYROXINE
  5. VOTRIENT [Suspect]
     Active Substance: PAZOPANIB HYDROCHLORIDE
     Indication: MALIGNANT NEOPLASM OF RENAL PELVIS
     Route: 048
     Dates: start: 20120804
  6. MULTIVITAMIN [Concomitant]
     Active Substance: VITAMINS
  7. AMOXICILLIN. [Concomitant]
     Active Substance: AMOXICILLIN
  8. FISH OIL [Concomitant]
     Active Substance: FISH OIL
  9. CIPRO [Concomitant]
     Active Substance: CIPROFLOXACIN HYDROCHLORIDE
  10. COREG [Concomitant]
     Active Substance: CARVEDILOL
  11. SUTENT [Concomitant]
     Active Substance: SUNITINIB MALATE
  12. BENTYL [Concomitant]
     Active Substance: DICYCLOMINE HYDROCHLORIDE
  13. ZYRTEC [Concomitant]
     Active Substance: CETIRIZINE HYDROCHLORIDE

REACTIONS (1)
  - Adverse drug reaction [Unknown]
